FAERS Safety Report 5472652-9 (Version None)
Quarter: 2007Q4

REPORT INFORMATION
  Report Type: 
  Country: None (occurrence: None)
  Receive Date: 20071001
  Receipt Date: 20060907
  Transmission Date: 20080405
  Serious: No
  Sender: FDA-Public Use
  Company Number: US-ASTRAZENECA-2006UW17562

PATIENT
  Age: 66 Year
  Sex: Female
  Weight: 83.5 kg

DRUGS (7)
  1. ARIMIDEX [Suspect]
     Indication: BREAST CANCER FEMALE
     Route: 048
  2. PAXIL [Concomitant]
  3. LISINOPRIL [Concomitant]
  4. VYTORIN [Concomitant]
  5. GLUCOTROL XL [Concomitant]
  6. AVANDIA [Concomitant]
  7. ANTI-INFLAMMATORY [Concomitant]

REACTIONS (5)
  - BACK PAIN [None]
  - HEADACHE [None]
  - MUSCLE SPASMS [None]
  - NECK PAIN [None]
  - PAIN IN EXTREMITY [None]
